FAERS Safety Report 25957905 (Version 1)
Quarter: 2025Q4

REPORT INFORMATION
  Report Type: Spontaneous
  Country: CN (occurrence: CN)
  Receive Date: 20251024
  Receipt Date: 20251024
  Transmission Date: 20260117
  Serious: Yes (Hospitalization)
  Sender: OTSUKA
  Company Number: CN-MMM-Otsuka-R5HLYD16

PATIENT
  Age: 13 Year
  Sex: Female
  Weight: 60 kg

DRUGS (2)
  1. ABILIFY [Suspect]
     Active Substance: ARIPIPRAZOLE
     Indication: Depression
     Dosage: 5 MG, QD
     Dates: start: 20250924, end: 20251013
  2. ABILIFY [Suspect]
     Active Substance: ARIPIPRAZOLE
     Dosage: 25 MG, DAILY (10 MG IN THE MORNING AND 15 MG IN THE EVENING)
     Dates: start: 20251014, end: 20251017

REACTIONS (2)
  - Chills [Recovering/Resolving]
  - Hypertonia [Recovering/Resolving]

NARRATIVE: CASE EVENT DATE: 20251005
